FAERS Safety Report 13156958 (Version 2)
Quarter: 2019Q2

REPORT INFORMATION
  Report Type: Report from Study
  Country: None (occurrence: IE)
  Receive Date: 20170127
  Receipt Date: 20190624
  Transmission Date: 20190711
  Serious: Yes (Hospitalization)
  Sender: FDA-Public Use
  Company Number: IE-ABBVIE-17P-229-1854344-00

PATIENT
  Sex: Male

DRUGS (2)
  1. HUMIRA [Suspect]
     Active Substance: ADALIMUMAB
     Indication: PSORIATIC ARTHROPATHY
     Route: 058
     Dates: end: 201709
  2. HUMIRA [Suspect]
     Active Substance: ADALIMUMAB
     Route: 058
     Dates: start: 2017

REACTIONS (4)
  - Loss of consciousness [Unknown]
  - Influenza [Unknown]
  - Nasopharyngitis [Recovered/Resolved]
  - Cardiac pacemaker insertion [Recovered/Resolved]

NARRATIVE: CASE EVENT DATE: 201701
